FAERS Safety Report 14029129 (Version 1)
Quarter: 2017Q4

REPORT INFORMATION
  Report Type: Spontaneous
  Country: US (occurrence: None)
  Receive Date: 20171002
  Receipt Date: 20171002
  Transmission Date: 20180321
  Serious: No
  Sender: FDA-Public Use
  Company Number: None

PATIENT
  Sex: Female
  Weight: 74.39 kg

DRUGS (2)
  1. ORENCIA [Suspect]
     Active Substance: ABATACEPT
     Indication: OSTEOPOROSIS
     Route: 058
     Dates: start: 201703
  2. PROLIA [Concomitant]
     Active Substance: DENOSUMAB

REACTIONS (1)
  - Rash [None]
